FAERS Safety Report 8779510 (Version 1)
Quarter: 2012Q4

REPORT INFORMATION
  Report Type: 
  Country: US (occurrence: US)
  Receive Date: 20120912
  Receipt Date: 20120912
  Transmission Date: 20130627
  Serious: Yes (Other)
  Sender: FDA-Public Use
  Company Number: US-ROCHE-1098305

PATIENT
  Sex: Male

DRUGS (6)
  1. ACTIVASE [Suspect]
     Indication: CHEST PAIN
     Route: 065
     Dates: start: 19930711
  2. ACTIVASE [Suspect]
     Indication: ANGINA PECTORIS
  3. NITRO [Concomitant]
     Dosage: 0.4 nitro with incresing rate
     Route: 065
     Dates: start: 19930711
  4. MORPHINE SULFATE [Concomitant]
     Route: 065
     Dates: start: 19930711
  5. PROCARDIA [Concomitant]
     Route: 065
     Dates: start: 19930711
  6. PHENERGAN [Concomitant]
     Route: 065
     Dates: start: 19930711

REACTIONS (2)
  - Ventricular fibrillation [Unknown]
  - Convulsion [Unknown]
